FAERS Safety Report 23405725 (Version 1)
Quarter: 2024Q1

REPORT INFORMATION
  Report Type: Spontaneous
  Country: US (occurrence: US)
  Receive Date: 20240116
  Receipt Date: 20240116
  Transmission Date: 20240409
  Serious: No
  Sender: FDA-Public Use
  Company Number: US-ANIPHARMA-2023-US-014725

PATIENT
  Sex: Female

DRUGS (3)
  1. REGLAN [Suspect]
     Active Substance: METOCLOPRAMIDE HYDROCHLORIDE
     Indication: Product used for unknown indication
     Route: 065
  2. ENADRYL [Concomitant]
     Route: 065
  3. STEROID ( UNK INGREDIENTS) [Concomitant]
     Route: 065

REACTIONS (2)
  - Dysphoria [Unknown]
  - Hypersensitivity [Unknown]
